APPROVED DRUG PRODUCT: ESOMEPRAZOLE SODIUM
Active Ingredient: ESOMEPRAZOLE SODIUM
Strength: EQ 40MG BASE/VIAL
Dosage Form/Route: INJECTABLE;INTRAVENOUS
Application: A207181 | Product #001 | TE Code: AP
Applicant: DEVA HOLDING AS
Approved: Mar 6, 2017 | RLD: No | RS: No | Type: RX